FAERS Safety Report 11240682 (Version 1)
Quarter: 2015Q3

REPORT INFORMATION
  Report Type: Spontaneous
  Country: CA (occurrence: CA)
  Receive Date: 20150706
  Receipt Date: 20150706
  Transmission Date: 20151125
  Serious: Yes (Other)
  Sender: FDA-Public Use
  Company Number: CA-009507513-1503CAN006565

PATIENT
  Sex: Male

DRUGS (1)
  1. TEMODAL [Suspect]
     Active Substance: TEMOZOLOMIDE
     Indication: BRAIN NEOPLASM
     Dosage: 75 MG, DAILY FOR 6 WEEKS
     Route: 048
     Dates: start: 201405

REACTIONS (5)
  - Weight decreased [Unknown]
  - Psychiatric symptom [Unknown]
  - Fatigue [Unknown]
  - Surgery [Unknown]
  - Seizure [Unknown]

NARRATIVE: CASE EVENT DATE: 2014
